FAERS Safety Report 16479212 (Version 1)
Quarter: 2019Q2

REPORT INFORMATION
  Report Type: Spontaneous
  Country: US (occurrence: US)
  Receive Date: 20190626
  Receipt Date: 20190626
  Transmission Date: 20190711
  Serious: Yes (Other)
  Sender: FDA-Public Use
  Company Number: US-SAOL THERAPEUTICS-2018SAO01065

PATIENT
  Age: 25 Year
  Sex: Female
  Weight: 38.6 kg

DRUGS (2)
  1. LIORESAL [Suspect]
     Active Substance: BACLOFEN
     Indication: CEREBRAL PALSY
     Dosage: 116 ?G, \DAY
     Route: 037
  2. LIORESAL [Suspect]
     Active Substance: BACLOFEN
     Indication: MUSCLE SPASTICITY
     Dosage: 443 ?G, \DAY
     Route: 037

REACTIONS (4)
  - Complication associated with device [Recovered/Resolved]
  - Drug withdrawal syndrome [Recovered/Resolved]
  - Therapy non-responder [Recovered/Resolved]
  - Decubitus ulcer [None]

NARRATIVE: CASE EVENT DATE: 2018
